FAERS Safety Report 5220184-5 (Version None)
Quarter: 2007Q1

REPORT INFORMATION
  Report Type: 
  Country: None (occurrence: None)
  Receive Date: 20061201
  Receipt Date: 20051103
  Transmission Date: 20070707
  Serious: Yes (Other)
  Sender: FDA-Public Use
  Company Number: PHEH2005US07743

PATIENT
  Age: 67 Year
  Sex: Female

DRUGS (5)
  1. LAMISIL [Suspect]
     Dosage: 250 MG ORAL
     Route: 048
     Dates: start: 20050531, end: 20050623
  2. CRESTOR [Concomitant]
  3. ACTONEL [Concomitant]
  4. EVISTA [Concomitant]
  5. SYNTHROID [Concomitant]

REACTIONS (5)
  - AGEUSIA [None]
  - APPETITE DISORDER [None]
  - DYSGEUSIA [None]
  - LEUKOPENIA [None]
  - NEUTROPENIA [None]
